FAERS Safety Report 24015761 (Version 1)
Quarter: 2024Q2

REPORT INFORMATION
  Report Type: Spontaneous
  Country: US (occurrence: US)
  Receive Date: 20240626
  Receipt Date: 20240626
  Transmission Date: 20240716
  Serious: Yes (Other)
  Sender: FDA-Public Use
  Company Number: US-PFIZER INC-202400200468

PATIENT
  Sex: Female

DRUGS (1)
  1. PREMARIN [Suspect]
     Active Substance: ESTROGENS, CONJUGATED
     Dosage: THREE DAYS PER WEEK
     Dates: start: 1970

REACTIONS (3)
  - Hysterectomy [Unknown]
  - Oophorectomy [Unknown]
  - Off label use [Unknown]
